FAERS Safety Report 25366469 (Version 1)
Quarter: 2025Q2

REPORT INFORMATION
  Report Type: Spontaneous
  Country: US (occurrence: US)
  Receive Date: 20250528
  Receipt Date: 20250528
  Transmission Date: 20250716
  Serious: Yes (Hospitalization)
  Sender: EXELA PHARMA SCIENCES
  Company Number: US-EXELAPHARMA-2025EXLA00092

PATIENT
  Age: 44 Year
  Sex: Male

DRUGS (1)
  1. ACETYLCYSTEINE [Suspect]
     Active Substance: ACETYLCYSTEINE
     Indication: Liver injury

REACTIONS (4)
  - Rash maculo-papular [Unknown]
  - Flushing [Unknown]
  - Dyspnoea [Unknown]
  - Off label use [Unknown]
